FAERS Safety Report 8926773 (Version 1)
Quarter: 2012Q4

REPORT INFORMATION
  Report Type: 
  Country: MX (occurrence: MX)
  Receive Date: 20121127
  Receipt Date: 20121127
  Transmission Date: 20130627
  Serious: Yes (Other)
  Sender: FDA-Public Use
  Company Number: MX-UCBSA-071351

PATIENT
  Age: 39 Year
  Sex: Female
  Weight: 57 kg

DRUGS (4)
  1. VIMPAT [Suspect]
     Indication: EPILEPSY
     Dosage: 50 MG
     Route: 048
     Dates: start: 20120822, end: 2012
  2. VIMPAT [Suspect]
     Indication: EPILEPSY
     Dosage: INCREASED DOSE
     Route: 048
     Dates: start: 2012, end: 2012
  3. VIMPAT [Suspect]
     Indication: EPILEPSY
     Route: 048
     Dates: start: 2012, end: 20120922
  4. CARBAMAZEPIN [Concomitant]
     Indication: EPILEPSY
     Route: 048
     Dates: start: 20120901

REACTIONS (4)
  - Convulsion [Recovered/Resolved]
  - Partial seizures [Recovered/Resolved]
  - Nausea [Recovered/Resolved]
  - Dizziness [Recovered/Resolved]
